FAERS Safety Report 9587376 (Version 1)
Quarter: 2013Q4

REPORT INFORMATION
  Report Type: Spontaneous
  Country: GB (occurrence: GB)
  Receive Date: 20131003
  Receipt Date: 20131003
  Transmission Date: 20140711
  Serious: Yes (Other)
  Sender: FDA-Public Use
  Company Number: GB-009507513-1310GBR001474

PATIENT
  Age: 85 Year
  Sex: Female
  Weight: 76.2 kg

DRUGS (7)
  1. LOSARTAN POTASSIUM [Suspect]
     Dosage: 50 MG, QD
     Route: 048
     Dates: start: 201202, end: 201204
  2. LOSARTAN POTASSIUM [Suspect]
     Dosage: UNK
  3. GARLIC [Concomitant]
  4. MAGNESIUM (UNSPECIFIED) [Concomitant]
  5. OMEGA-3 MARINE TRIGLYCERIDES [Concomitant]
  6. PYRIDOXINE [Concomitant]
  7. VITAMIN D (UNSPECIFIED) [Concomitant]

REACTIONS (3)
  - Myalgia [Not Recovered/Not Resolved]
  - Muscular weakness [Not Recovered/Not Resolved]
  - Musculoskeletal pain [Not Recovered/Not Resolved]
